FAERS Safety Report 4320004-7 (Version None)
Quarter: 2004Q1

REPORT INFORMATION
  Report Type: 
  Country: None (occurrence: None)
  Receive Date: 20040319
  Receipt Date: 20040223
  Transmission Date: 20041129
  Serious: Yes (Hospitalization, Disabling)
  Sender: FDA-Public Use
  Company Number: WAES 0402USA01730

PATIENT
  Age: 26 Year
  Sex: Male
  Weight: 48 kg

DRUGS (1)
  1. STROMECTOL [Suspect]
     Route: 048
     Dates: start: 20031209, end: 20031209

REACTIONS (20)
  - ABDOMINAL PAIN [None]
  - ABNORMAL BEHAVIOUR [None]
  - ASTHENIA [None]
  - BALANCE DISORDER [None]
  - CHEST PAIN [None]
  - COMA [None]
  - CONJUNCTIVAL HYPERAEMIA [None]
  - DELIRIUM [None]
  - DIARRHOEA [None]
  - ENCEPHALOPATHY [None]
  - FILARIASIS [None]
  - HEADACHE [None]
  - INCOHERENT [None]
  - LOSS OF CONSCIOUSNESS [None]
  - MALARIA [None]
  - ONCHOCERCIASIS [None]
  - PALLOR [None]
  - PYREXIA [None]
  - SCHISTOSOMIASIS [None]
  - SPEECH DISORDER [None]
